FAERS Safety Report 5712931-0 (Version None)
Quarter: 2008Q2

REPORT INFORMATION
  Report Type: 
  Country: None (occurrence: None)
  Receive Date: 20080422
  Receipt Date: 20080411
  Transmission Date: 20081010
  Serious: Yes (Hospitalization)
  Sender: FDA-Public Use
  Company Number: US-MERCK-0804USA02677

PATIENT
  Age: 69 Year
  Sex: Male
  Weight: 86 kg

DRUGS (10)
  1. VYTORIN [Suspect]
     Route: 048
  2. ASPIRIN [Concomitant]
     Route: 065
     Dates: start: 19960101
  3. PREVACID [Concomitant]
     Route: 065
  4. ATENOLOL [Concomitant]
     Route: 065
     Dates: start: 19850101, end: 20080101
  5. COREG [Concomitant]
     Route: 065
     Dates: start: 20080101
  6. RAMIPRIL [Concomitant]
     Route: 065
     Dates: start: 20080101
  7. PAXIL [Concomitant]
     Route: 065
     Dates: start: 20030101
  8. COUMADIN [Concomitant]
     Route: 065
     Dates: start: 19960101
  9. PLAVIX [Concomitant]
     Route: 065
     Dates: start: 19960101
  10. WARFARIN [Concomitant]
     Route: 065
     Dates: end: 20070801

REACTIONS (1)
  - CEREBRAL THROMBOSIS [None]
